FAERS Safety Report 8542877-4 (Version None)
Quarter: 2012Q3

REPORT INFORMATION
  Report Type: 
  Country: None (occurrence: None)
  Receive Date: 20120727
  Receipt Date: 20120717
  Transmission Date: 20120928
  Serious: No
  Sender: FDA-Public Use
  Company Number: US-009507513-1110USA03639

PATIENT

DRUGS (3)
  1. CLARITIN-D [Concomitant]
     Indication: RHINITIS ALLERGIC
     Dosage: 10MG/240
     Route: 048
  2. FOSAMAX [Suspect]
     Indication: OSTEOPOROSIS
     Dosage: 3 DOSES
     Route: 048
     Dates: start: 20110902, end: 20111020
  3. LEVOXYL [Concomitant]
     Indication: HYPOTHYROIDISM
     Dosage: 150 MG, QD

REACTIONS (6)
  - OEDEMA PERIPHERAL [None]
  - ARTHRALGIA [None]
  - ABDOMINAL DISCOMFORT [None]
  - THROAT IRRITATION [None]
  - OROPHARYNGEAL PAIN [None]
  - JOINT STIFFNESS [None]
